FAERS Safety Report 7582192-9 (Version None)
Quarter: 2011Q2

REPORT INFORMATION
  Report Type: 
  Country: None (occurrence: None)
  Receive Date: 20110630
  Receipt Date: 20110615
  Transmission Date: 20111010
  Serious: Yes (Life-Threatening, Hospitalization, Other)
  Sender: FDA-Public Use
  Company Number: JP-AMGEN-JPNSP2011030855

PATIENT
  Age: 36 Year
  Sex: Male

DRUGS (5)
  1. HEPARIN SODIUM [Concomitant]
     Dosage: 800 IU, UNK
  2. AMLODIPINE BESYLATE [Concomitant]
  3. ARANESP [Suspect]
     Indication: IGA NEPHROPATHY
     Dosage: 40 A?G, QWK
  4. CINACALCET HYDROCHLORIDE [Suspect]
     Indication: HYPERPARATHYROIDISM SECONDARY
  5. HEPARIN [Concomitant]
     Dosage: 1000 IU, UNK

REACTIONS (4)
  - RENAL HAEMORRHAGE [None]
  - EOSINOPHILIA [None]
  - RENAL HAEMATOMA [None]
  - DRUG HYPERSENSITIVITY [None]
